FAERS Safety Report 18559570 (Version 1)
Quarter: 2020Q4

REPORT INFORMATION
  Report Type: Spontaneous
  Country: LV (occurrence: LV)
  Receive Date: 20201130
  Receipt Date: 20201130
  Transmission Date: 20210114
  Serious: Yes (Other)
  Sender: FDA-Public Use
  Company Number: NVSC2020LV313370

PATIENT
  Age: 65 Year
  Sex: Female

DRUGS (2)
  1. AIRBUFO FORSPIRO [BUDESONIDE\FORMOTEROL FUMARATE]? [Suspect]
     Active Substance: BUDESONIDE\FORMOTEROL FUMARATE
     Indication: ASTHMA
     Dosage: UNK UNK, Q12H
     Route: 055
     Dates: start: 20201016, end: 202010
  2. AIRBUFO FORSPIRO [BUDESONIDE\FORMOTEROL FUMARATE]? [Suspect]
     Active Substance: BUDESONIDE\FORMOTEROL FUMARATE
     Dosage: UNK UNK, Q6H
     Route: 055
     Dates: start: 202011, end: 202011

REACTIONS (3)
  - Inappropriate schedule of product administration [Unknown]
  - Taste disorder [Recovering/Resolving]
  - Therapeutic product effect decreased [Recovering/Resolving]

NARRATIVE: CASE EVENT DATE: 20201016
